FAERS Safety Report 19460218 (Version 3)
Quarter: 2022Q4

REPORT INFORMATION
  Report Type: Spontaneous
  Country: AU (occurrence: None)
  Receive Date: 20210625
  Receipt Date: 20221228
  Transmission Date: 20230112
  Serious: Yes (Death, Life-Threatening, Hospitalization, Other)
  Sender: FDA-Public Use
  Company Number: AU-MEDAC-2021001098

PATIENT
  Age: 67 Year
  Sex: Female

DRUGS (3)
  1. METHOTREXATE [Suspect]
     Active Substance: METHOTREXATE
     Indication: Rheumatoid arthritis
     Route: 065
     Dates: start: 2012, end: 2019
  2. METHOTREXATE [Suspect]
     Active Substance: METHOTREXATE
     Dosage: REDUCED
     Route: 065
     Dates: start: 2019, end: 201904
  3. HYDROXYCHLOROQUINE [Suspect]
     Active Substance: HYDROXYCHLOROQUINE
     Indication: Rheumatoid arthritis
     Route: 065
     Dates: start: 2012

REACTIONS (4)
  - Angiocentric lymphoma [Fatal]
  - Lung infiltration [Fatal]
  - Epstein-Barr virus associated lymphoproliferative disorder [Fatal]
  - Acute respiratory distress syndrome [Fatal]

NARRATIVE: CASE EVENT DATE: 20181001
